FAERS Safety Report 24263201 (Version 2)
Quarter: 2024Q3

REPORT INFORMATION
  Report Type: Spontaneous
  Country: US (occurrence: US)
  Receive Date: 20240829
  Receipt Date: 20240905
  Transmission Date: 20241016
  Serious: No
  Sender: PFIZER
  Company Number: US-PFIZER INC-PV202400111536

PATIENT
  Age: 71 Year
  Sex: Female
  Weight: 118.1 kg

DRUGS (2)
  1. IBRANCE [Suspect]
     Active Substance: PALBOCICLIB
     Indication: Breast cancer metastatic
     Dosage: 125 MG, CYCLIC (1 TABLET DAILY FOR 21 DAYS THEN 7 DAYS OFF)
     Route: 048
     Dates: start: 202301
  2. ARIMIDEX [Suspect]
     Active Substance: ANASTROZOLE
     Indication: Breast cancer metastatic
     Dosage: UNK
     Dates: start: 202301

REACTIONS (9)
  - Arthralgia [Unknown]
  - Hot flush [Unknown]
  - Sleep disorder due to general medical condition, insomnia type [Unknown]
  - Neck pain [Unknown]
  - Back pain [Unknown]
  - Mobility decreased [Unknown]
  - Weight increased [Unknown]
  - Decreased appetite [Unknown]
  - Nausea [Unknown]

NARRATIVE: CASE EVENT DATE: 20230101
